FAERS Safety Report 6736287-X (Version None)
Quarter: 2010Q2

REPORT INFORMATION
  Report Type: 
  Country: None (occurrence: None)
  Receive Date: 20100521
  Receipt Date: 20100510
  Transmission Date: 20101027
  Serious: Yes (Other)
  Sender: FDA-Public Use
  Company Number: BR-GENENTECH-301539

PATIENT
  Sex: Female
  Weight: 80 kg

DRUGS (6)
  1. RITUXIMAB [Suspect]
     Indication: RHEUMATOID ARTHRITIS
     Dosage: 1000 MG/ML, DAYS 2+15
     Route: 042
  2. RITUXIMAB [Suspect]
     Indication: SJOGREN'S SYNDROME
     Dosage: UNK
     Route: 042
     Dates: start: 20100429, end: 20100429
  3. FOLIC ACID [Concomitant]
     Indication: DRUG USE FOR UNKNOWN INDICATION
     Dosage: UNK
  4. METHOTREXATE [Concomitant]
     Indication: DRUG USE FOR UNKNOWN INDICATION
     Dosage: 2.5 MG, 1/WEEK
  5. CALCIUM [Concomitant]
     Indication: DRUG USE FOR UNKNOWN INDICATION
     Dosage: 600 MG, UNK
  6. ALENDRONATE SODIUM [Concomitant]
     Indication: DRUG USE FOR UNKNOWN INDICATION
     Dosage: 700 MG, UNK

REACTIONS (3)
  - LARYNGEAL DISORDER [None]
  - LARYNGEAL OEDEMA [None]
  - PRURITUS [None]
